FAERS Safety Report 14159732 (Version 1)
Quarter: 2017Q4

REPORT INFORMATION
  Report Type: Spontaneous
  Country: US (occurrence: US)
  Receive Date: 20171103
  Receipt Date: 20171103
  Transmission Date: 20180321
  Serious: No
  Sender: FDA-Public Use
  Company Number: US-AMGEN-USASP2017094840

PATIENT
  Age: 75 Year
  Sex: Female
  Weight: 48.98 kg

DRUGS (14)
  1. COUMADIN [Concomitant]
     Active Substance: WARFARIN SODIUM
     Dosage: 5 MG MONDAY TO FRIDAY AND 2.5 MG SATURDAY AND SUNDAY, QD
  2. TACROLIMUS. [Concomitant]
     Active Substance: TACROLIMUS
     Dosage: 2.5 MG, BID
  3. VITAMIN D [Concomitant]
     Active Substance: CHOLECALCIFEROL
     Dosage: 50000 IU, 2 TIMES/WK
  4. AVELOX [Concomitant]
     Active Substance: MOXIFLOXACIN HYDROCHLORIDE
     Indication: NOCARDIOSIS
     Dosage: 400 MG, QD
  5. PREDNISONE. [Concomitant]
     Active Substance: PREDNISONE
     Dosage: 5 MG, QD
  6. AUGMENTIN [Concomitant]
     Active Substance: AMOXICILLIN\CLAVULANATE POTASSIUM
     Indication: NOCARDIOSIS
     Dosage: 500 MG, BID
  7. PROCRIT [Suspect]
     Active Substance: ERYTHROPOIETIN
     Indication: HAEMOGLOBIN DECREASED
     Dosage: 10,000 UNITS, Q2WK (EVERY OTHER WEEK)
     Route: 058
     Dates: start: 2017
  8. CALCIUM [Concomitant]
     Active Substance: CALCIUM
     Dosage: 500 MG, BID
  9. PANTOPRAZOLE [Concomitant]
     Active Substance: PANTOPRAZOLE
     Dosage: 40 MG, BID
  10. FISH OIL [Concomitant]
     Active Substance: FISH OIL
     Dosage: 200 MG, BID
  11. METOPROLOL. [Concomitant]
     Active Substance: METOPROLOL
     Dosage: 12.5 MG, BID
  12. DAPSONE. [Concomitant]
     Active Substance: DAPSONE
     Indication: NOCARDIOSIS
     Dosage: 100 MG, 3 TIMES/WK, (100 MG MONDAY-WEDNESDAY-FRIDAY)
  13. RESTASIS [Concomitant]
     Active Substance: CYCLOSPORINE
     Dosage: UNK UNK, BID (BOTH EYES TWICE A DAY)
  14. FOLIC ACID. [Concomitant]
     Active Substance: FOLIC ACID
     Dosage: 1 MG, QD

REACTIONS (2)
  - Drug dose omission [Unknown]
  - Product storage error [Unknown]

NARRATIVE: CASE EVENT DATE: 2017
